FAERS Safety Report 25248327 (Version 1)
Quarter: 2025Q2

REPORT INFORMATION
  Report Type: Spontaneous
  Country: US (occurrence: US)
  Receive Date: 20250429
  Receipt Date: 20250429
  Transmission Date: 20250716
  Serious: No
  Sender: NOVAST LABORATORIES LTD
  Company Number: US-NOVAST LABORATORIES INC.-2025NOV000188

PATIENT

DRUGS (2)
  1. NEW DAY [Suspect]
     Active Substance: LEVONORGESTREL
     Indication: Product used for unknown indication
     Route: 064
     Dates: start: 20250107
  2. NEW DAY [Suspect]
     Active Substance: LEVONORGESTREL
     Route: 064
     Dates: start: 20250113

REACTIONS (1)
  - Foetal exposure during pregnancy [Unknown]
